FAERS Safety Report 6463187-5 (Version None)
Quarter: 2009Q4

REPORT INFORMATION
  Report Type: 
  Country: None (occurrence: None)
  Receive Date: 20091124
  Receipt Date: 20091116
  Transmission Date: 20100525
  Serious: Yes (Other)
  Sender: FDA-Public Use
  Company Number: 2009027484

PATIENT
  Age: 50 Year
  Sex: Male

DRUGS (1)
  1. ROGAINE [Suspect]
     Indication: ALOPECIA
     Dosage: 1 ML TWICE A DAY (2 IN 1 D), TOPICAL
     Route: 061

REACTIONS (2)
  - ALOPECIA [None]
  - BLISTER [None]
